FAERS Safety Report 9596893 (Version 2)
Quarter: 2013Q4

REPORT INFORMATION
  Report Type: Spontaneous
  Country: US (occurrence: US)
  Receive Date: 20131004
  Receipt Date: 20131104
  Transmission Date: 20140711
  Serious: Yes (Other)
  Sender: FDA-Public Use
  Company Number: ALCN2013US004966

PATIENT
  Age: 40 Year
  Sex: Male

DRUGS (1)
  1. NAPHCON A [Suspect]
     Indication: EYELID PTOSIS
     Dosage: UNK GTT, UNK
     Route: 047
     Dates: start: 20130827

REACTIONS (3)
  - Panic attack [Recovered/Resolved]
  - Tremor [Recovered/Resolved]
  - Blood pressure increased [Recovered/Resolved]
